FAERS Safety Report 14262716 (Version 1)
Quarter: 2017Q4

REPORT INFORMATION
  Report Type: Spontaneous
  Country: US (occurrence: US)
  Receive Date: 20171208
  Receipt Date: 20171208
  Transmission Date: 20180321
  Serious: Yes (Hospitalization, Other)
  Sender: FDA-Public Use
  Company Number: US-WEST-WARD PHARMACEUTICALS CORP.-US-H14001-17-04725

PATIENT
  Age: 46 Year
  Sex: Female

DRUGS (2)
  1. HEPARIN [Suspect]
     Active Substance: HEPARIN SODIUM
     Indication: PRODUCT USED FOR UNKNOWN INDICATION
     Route: 042
  2. PROMETHAZINE [Suspect]
     Active Substance: PROMETHAZINE\PROMETHAZINE HYDROCHLORIDE
     Indication: NAUSEA
     Route: 042

REACTIONS (6)
  - Pulmonary hypertension [Recovered/Resolved]
  - Drug chemical incompatibility [Recovered/Resolved]
  - Pulmonary embolism [Recovering/Resolving]
  - Foreign body reaction [Recovering/Resolving]
  - Pulmonary mass [Recovering/Resolving]
  - Wrong technique in product usage process [Recovered/Resolved]
